APPROVED DRUG PRODUCT: ACTONEL
Active Ingredient: RISEDRONATE SODIUM
Strength: 75MG **Federal Register determination that product was not discontinued or withdrawn for safety or effectiveness reasons**
Dosage Form/Route: TABLET;ORAL
Application: N020835 | Product #004
Applicant: ALLERGAN PHARMACEUTICALS INTERNATIONAL LTD
Approved: Apr 16, 2007 | RLD: Yes | RS: No | Type: DISCN